FAERS Safety Report 4648297-7 (Version None)
Quarter: 2005Q2

REPORT INFORMATION
  Report Type: 
  Country: None (occurrence: None)
  Receive Date: 20050331
  Receipt Date: 20041228
  Transmission Date: 20051028
  Serious: No
  Sender: FDA-Public Use
  Company Number: 04P-163-0284774-00

PATIENT
  Age: 65 Year
  Sex: Male
  Weight: 68.9467 kg

DRUGS (15)
  1. HUMIRA [Suspect]
     Indication: RHEUMATOID ARTHRITIS
     Dosage: 40 MG, 1 IN 2 WK, SUBCUTANEOUS
     Route: 058
     Dates: start: 20030101, end: 20041224
  2. MONTELUKAST SODIUM [Concomitant]
  3. ISOSORBIDE [Concomitant]
  4. ACETYL SALICYLIC ACID USP BAT [Concomitant]
  5. SERTRALINE HYDROCHLORIDE [Concomitant]
  6. ROSIGLITAZONE MALEATE [Concomitant]
  7. METOPROLOL [Concomitant]
  8. PREDNISONE TAB [Concomitant]
  9. OXYGEN [Concomitant]
  10. LEVOSALBUTAMOL [Concomitant]
  11. IPRATROPIUM BROMIDE [Concomitant]
  12. NITROGLYCERIN [Concomitant]
  13. FUROSEMIDE [Concomitant]
  14. POTASSIUM CHLORIDE [Concomitant]
  15. SALMETEROL XINAFOATE [Concomitant]

REACTIONS (1)
  - RASH GENERALISED [None]
